FAERS Safety Report 20549674 (Version 2)
Quarter: 2022Q1

REPORT INFORMATION
  Report Type: Report from Study
  Country: AU (occurrence: AU)
  Receive Date: 20220304
  Receipt Date: 20220308
  Transmission Date: 20220424
  Serious: Yes (Death)
  Sender: FDA-Public Use
  Company Number: AU-NOVARTISPH-NVSC2022AU049916

PATIENT
  Sex: Male
  Weight: 60 kg

DRUGS (2)
  1. DABRAFENIB [Suspect]
     Active Substance: DABRAFENIB
     Indication: Papillary thyroid cancer
     Dosage: UNK
     Route: 065
     Dates: end: 20210928
  2. TRAMETINIB [Suspect]
     Active Substance: TRAMETINIB
     Indication: Papillary thyroid cancer
     Dosage: UNK
     Route: 065
     Dates: end: 20210928

REACTIONS (1)
  - Death [Fatal]
